FAERS Safety Report 18256856 (Version 5)
Quarter: 2020Q4

REPORT INFORMATION
  Report Type: Report from Study
  Country: US (occurrence: US)
  Receive Date: 20200911
  Receipt Date: 20201105
  Transmission Date: 20210113
  Serious: Yes (Other)
  Sender: FDA-Public Use
  Company Number: NVSC2020US249065

PATIENT
  Sex: Male
  Weight: 113 kg

DRUGS (5)
  1. CARVEDILOL. [Concomitant]
     Active Substance: CARVEDILOL
     Indication: PRODUCT USED FOR UNKNOWN INDICATION
     Dosage: UNK
     Route: 065
  2. POTASSIUM [Concomitant]
     Active Substance: POTASSIUM
     Indication: PRODUCT USED FOR UNKNOWN INDICATION
     Dosage: UNK
     Route: 065
  3. ENTRESTO [Suspect]
     Active Substance: SACUBITRIL\VALSARTAN
     Indication: CARDIAC FAILURE
     Dosage: 100 MG, BID (49/51 MG, BID)
     Route: 048
     Dates: start: 202007
  4. COENZYME Q10 [Concomitant]
     Active Substance: DIETARY SUPPLEMENT\UBIDECARENONE
     Indication: PRODUCT USED FOR UNKNOWN INDICATION
     Dosage: UNK
     Route: 065
  5. MAGNESIUM [Concomitant]
     Active Substance: MAGNESIUM
     Indication: PRODUCT USED FOR UNKNOWN INDICATION
     Dosage: UNK
     Route: 065

REACTIONS (11)
  - Weight decreased [Unknown]
  - Dyspnoea [Unknown]
  - Decreased activity [Unknown]
  - Back disorder [Unknown]
  - Cough [Unknown]
  - Chest discomfort [Unknown]
  - Concomitant disease aggravated [Recovered/Resolved]
  - Accident [Unknown]
  - Overweight [Unknown]
  - Glucose tolerance impaired [Recovered/Resolved]
  - Back pain [Not Recovered/Not Resolved]
